FAERS Safety Report 7552327-2 (Version None)
Quarter: 2011Q2

REPORT INFORMATION
  Report Type: 
  Country: None (occurrence: None)
  Receive Date: 20110616
  Receipt Date: 20050406
  Transmission Date: 20111010
  Serious: Yes (Death)
  Sender: FDA-Public Use
  Company Number: PHHO2005AR05666

PATIENT
  Age: 59 Year
  Sex: Female

DRUGS (1)
  1. DIOVAN [Suspect]
     Dosage: 80 MG, QW3
     Dates: start: 20040101

REACTIONS (1)
  - DEATH [None]
